FAERS Safety Report 4331896-X (Version None)
Quarter: 2004Q2

REPORT INFORMATION
  Report Type: 
  Country: None (occurrence: None)
  Receive Date: 20040405
  Receipt Date: 19980812
  Transmission Date: 20050107
  Serious: No
  Sender: FDA-Public Use
  Company Number: US-GLAXOSMITHKLINE-A0069227A

PATIENT
  Age: 80 Year
  Sex: Female
  Weight: 55.9 kg

DRUGS (8)
  1. SEREVENT [Suspect]
     Dosage: 2PUFF TWICE PER DAY
     Route: 055
     Dates: start: 19980101
  2. SEREVENT [Suspect]
     Dosage: 1PUFF TWICE PER DAY
     Route: 055
     Dates: start: 20030601
  3. NORVASC [Concomitant]
  4. HCT [Concomitant]
  5. VITAMIN CAP [Concomitant]
  6. ASPIRIN [Concomitant]
  7. SINGULAIR [Concomitant]
  8. ZYRTEC [Concomitant]

REACTIONS (4)
  - DYSPHONIA [None]
  - HOARSENESS [None]
  - LARYNGITIS [None]
  - PRURITUS [None]
